FAERS Safety Report 5050996-2 (Version None)
Quarter: 2006Q3

REPORT INFORMATION
  Report Type: 
  Country: None (occurrence: None)
  Receive Date: 20060714
  Receipt Date: 20060705
  Transmission Date: 20061208
  Serious: Yes (Other)
  Sender: FDA-Public Use
  Company Number: IE-JNJFOC-20060404214

PATIENT
  Sex: Female
  Weight: 96 kg

DRUGS (3)
  1. REMICADE [Suspect]
     Route: 042
  2. REMICADE [Suspect]
     Indication: DRUG USE FOR UNKNOWN INDICATION
     Dosage: 20TH INFUSION
     Route: 042
  3. METHOTREXATE [Concomitant]
     Route: 065

REACTIONS (1)
  - BREAST CANCER [None]
